FAERS Safety Report 25559858 (Version 1)
Quarter: 2025Q3

REPORT INFORMATION
  Report Type: Spontaneous
  Country: US (occurrence: US)
  Receive Date: 20250715
  Receipt Date: 20250715
  Transmission Date: 20251021
  Serious: No
  Sender: NOVO NORDISK
  Company Number: US-NOVOPROD-1421320

PATIENT
  Age: 49 Year
  Sex: Female
  Weight: 130 kg

DRUGS (1)
  1. OZEMPIC [Suspect]
     Active Substance: SEMAGLUTIDE
     Indication: Obesity

REACTIONS (3)
  - Adverse drug reaction [Unknown]
  - Ill-defined disorder [Unknown]
  - Product use in unapproved indication [Unknown]
